FAERS Safety Report 7153329-0 (Version None)
Quarter: 2010Q4

REPORT INFORMATION
  Report Type: 
  Country: None (occurrence: None)
  Receive Date: 20101213
  Receipt Date: 20101203
  Transmission Date: 20110411
  Serious: Yes (Hospitalization)
  Sender: FDA-Public Use
  Company Number: DE-ELI_LILLY_AND_COMPANY-DE201012001171

PATIENT
  Age: 75 Year
  Sex: Male
  Weight: 77 kg

DRUGS (4)
  1. PRASUGREL HYDROCHLORIDE [Suspect]
     Indication: ACUTE MYOCARDIAL INFARCTION
     Dosage: 30 MG, PRETREATMENT LOADING DOSE
     Route: 048
     Dates: start: 20101119, end: 20101119
  2. PRASUGREL HYDROCHLORIDE [Suspect]
     Dosage: 30 MG, PCI LOADING DOSE
     Route: 048
     Dates: start: 20101119, end: 20101119
  3. PLACEBO [Suspect]
     Indication: ACUTE MYOCARDIAL INFARCTION
     Dosage: 3 TABLETS, PCI LOADING DOSE
     Route: 048
     Dates: start: 20101119, end: 20101119
  4. PRASUGREL HYDROCHLORIDE [Suspect]
     Dosage: 5 MG, DAILY (1/D)
     Route: 048
     Dates: start: 20101120

REACTIONS (1)
  - CHEST PAIN [None]
